FAERS Safety Report 6254955-3 (Version None)
Quarter: 2009Q3

REPORT INFORMATION
  Report Type: 
  Country: None (occurrence: None)
  Receive Date: 20090702
  Receipt Date: 20090625
  Transmission Date: 20100115
  Serious: Yes (Hospitalization)
  Sender: FDA-Public Use
  Company Number: FR-MERCK-0906FRA00118

PATIENT
  Age: 20 Year
  Sex: Male

DRUGS (7)
  1. PRIMAXIN [Suspect]
     Route: 065
     Dates: start: 20090125, end: 20090210
  2. ASPARAGINASE (AS DRUG) [Suspect]
     Route: 041
     Dates: start: 20090126, end: 20090126
  3. METHOTREXATE [Suspect]
     Route: 051
     Dates: start: 20090123, end: 20090130
  4. VINCRISTINE SULFATE [Suspect]
     Route: 041
     Dates: start: 20090124, end: 20090207
  5. MITOXANTRONE HYDROCHLORIDE [Suspect]
     Route: 041
     Dates: start: 20090124, end: 20090125
  6. CIPROFLOXACIN HYDROCHLORIDE [Suspect]
     Route: 041
     Dates: start: 20090125, end: 20090210
  7. VANCOMYCIN [Suspect]
     Route: 041
     Dates: start: 20090125, end: 20090210

REACTIONS (1)
  - HYPERAMMONAEMIC ENCEPHALOPATHY [None]
